FAERS Safety Report 13512138 (Version 1)
Quarter: 2017Q2

REPORT INFORMATION
  Report Type: Spontaneous
  Country: US (occurrence: US)
  Receive Date: 20170504
  Receipt Date: 20170504
  Transmission Date: 20170830
  Serious: Yes (Hospitalization, Other)
  Sender: FDA-Public Use
  Company Number: US-AMGEN-USASP2017064340

PATIENT
  Age: 40 Year
  Sex: Male

DRUGS (14)
  1. VALGANCICLOVIR. [Concomitant]
     Active Substance: VALGANCICLOVIR
     Indication: CYTOMEGALOVIRUS VIRAEMIA
     Dosage: 900 MG, BID
  2. ASPARAGINASE [Concomitant]
     Active Substance: ASPARAGINASE
     Dosage: UNK
     Dates: start: 20160809
  3. METHOTREXATE. [Suspect]
     Active Substance: METHOTREXATE
     Indication: PRODUCT USED FOR UNKNOWN INDICATION
     Dosage: 20 MG/M2, QWK
     Route: 065
     Dates: start: 20140515
  4. CYTARABINE W/HYDROCORTISONE/METHOTREXATE [Concomitant]
     Dosage: 15MG, 40 MG, 50 MG
  5. VITAMIN B12 [Concomitant]
     Active Substance: CYANOCOBALAMIN
     Dosage: UNK
     Dates: start: 201506
  6. RITUXIMAB [Concomitant]
     Active Substance: RITUXIMAB
     Dosage: UNK
     Dates: start: 20140115
  7. VINCRISTINE [Suspect]
     Active Substance: VINCRISTINE
     Indication: PRODUCT USED FOR UNKNOWN INDICATION
     Dosage: 1.5 MG/M2, 3 TIMES A MONTH
     Route: 065
     Dates: start: 20141010
  8. IRON [Concomitant]
     Active Substance: IRON
     Dosage: UNK
     Dates: start: 201506
  9. IVIGLOB EX [Concomitant]
     Active Substance: HUMAN IMMUNOGLOBULIN G
     Dosage: UNK
     Dates: start: 20150724
  10. FOSCARNET [Concomitant]
     Active Substance: FOSCARNET
     Indication: CYTOMEGALOVIRUS VIRAEMIA
  11. CYTOGAM [Concomitant]
     Active Substance: HUMAN CYTOMEGALOVIRUS IMMUNE GLOBULIN
     Indication: CYTOMEGALOVIRUS VIRAEMIA
  12. DEXAMETHASONE. [Concomitant]
     Active Substance: DEXAMETHASONE
     Dosage: 6 MG/M2, BID
     Dates: start: 20141010
  13. BLINCYTO [Suspect]
     Active Substance: BLINATUMOMAB
     Indication: ACUTE LYMPHOCYTIC LEUKAEMIA
     Dosage: UNK
     Route: 065
     Dates: start: 20160713
  14. MERCAPTOPURINE. [Concomitant]
     Active Substance: MERCAPTOPURINE
     Dosage: 75 MG/M2, QD

REACTIONS (10)
  - Clostridium difficile colitis [Unknown]
  - Central nervous system leukaemia [Unknown]
  - Urinary tract infection [Unknown]
  - Mental status changes [Unknown]
  - Seizure [Unknown]
  - Blast cell count increased [Unknown]
  - Pyrexia [Unknown]
  - Deep vein thrombosis [Unknown]
  - Viral myelitis [Unknown]
  - Sepsis [Unknown]

NARRATIVE: CASE EVENT DATE: 201607
